FAERS Safety Report 4522350-0 (Version None)
Quarter: 2004Q4

REPORT INFORMATION
  Report Type: 
  Country: None (occurrence: None)
  Receive Date: 20041207
  Receipt Date: 20041019
  Transmission Date: 20050328
  Serious: Yes (Death)
  Sender: FDA-Public Use
  Company Number: S04-UKI-07957-01

PATIENT
  Age: 40 Year
  Sex: Female

DRUGS (2)
  1. CIPRAMIL (CITALOPRAM) [Suspect]
     Indication: DEPRESSION
     Dosage: 20 MG QD PO
     Route: 048
     Dates: start: 20040823, end: 20040901
  2. MIRTAZAPINE [Concomitant]

REACTIONS (1)
  - COMPLETED SUICIDE [None]
